FAERS Safety Report 5516157-5 (Version None)
Quarter: 2007Q4

REPORT INFORMATION
  Report Type: 
  Country: None (occurrence: None)
  Receive Date: 20071114
  Receipt Date: 20070103
  Transmission Date: 20080405
  Serious: No
  Sender: FDA-Public Use
  Company Number: A0633133A

PATIENT
  Age: 56 Year
  Sex: Female

DRUGS (2)
  1. COMMIT [Suspect]
     Dates: start: 20070102
  2. WELLBUTRIN [Suspect]
     Route: 048

REACTIONS (8)
  - DYSPEPSIA [None]
  - GLOSSODYNIA [None]
  - INSOMNIA [None]
  - NAUSEA [None]
  - NICOTINE DEPENDENCE [None]
  - ORAL DISCOMFORT [None]
  - PARAESTHESIA ORAL [None]
  - THROAT IRRITATION [None]
